FAERS Safety Report 24368287 (Version 1)
Quarter: 2024Q3

REPORT INFORMATION
  Report Type: Spontaneous
  Country: US (occurrence: US)
  Receive Date: 20240926
  Receipt Date: 20240926
  Transmission Date: 20241016
  Serious: No
  Sender: SANOFI AVENTIS
  Company Number: US-SA-2024SA277904

PATIENT
  Age: 47 Year
  Sex: Female

DRUGS (15)
  1. DUPIXENT [Suspect]
     Active Substance: DUPILUMAB
     Indication: Dermatitis atopic
     Dosage: 300 MG
     Route: 058
     Dates: start: 20211215
  2. HYDROCHLOROTHIAZIDE\LISINOPRIL [Concomitant]
     Active Substance: HYDROCHLOROTHIAZIDE\LISINOPRIL
  3. TRIAMCINOLONE [Concomitant]
     Active Substance: TRIAMCINOLONE
  4. ATORVASTATIN [Concomitant]
     Active Substance: ATORVASTATIN
  5. DESONIDE [Concomitant]
     Active Substance: DESONIDE
  6. VITAMINS NOS [Concomitant]
     Active Substance: VITAMINS
  7. TACROLIMUS [Concomitant]
     Active Substance: TACROLIMUS
  8. PROBIOTICS NOS [Concomitant]
     Active Substance: PROBIOTICS NOS
  9. PROAIR HFA [Concomitant]
     Active Substance: ALBUTEROL SULFATE
  10. IRON [Concomitant]
     Active Substance: IRON
  11. METFORMIN [Concomitant]
     Active Substance: METFORMIN HYDROCHLORIDE
  12. ZYRTEC [Concomitant]
     Active Substance: CETIRIZINE HYDROCHLORIDE
  13. FLUCONAZOLE [Concomitant]
     Active Substance: FLUCONAZOLE
  14. FLUOROMETHOLONE [Concomitant]
     Active Substance: FLUOROMETHOLONE
  15. LEVOTHYROXINE [Concomitant]
     Active Substance: LEVOTHYROXINE\LEVOTHYROXINE SODIUM

REACTIONS (2)
  - Periorbital inflammation [Unknown]
  - Eye pruritus [Unknown]

NARRATIVE: CASE EVENT DATE: 20240911
